FAERS Safety Report 5117645-6 (Version None)
Quarter: 2006Q3

REPORT INFORMATION
  Report Type: 
  Country: None (occurrence: None)
  Receive Date: 20060926
  Receipt Date: 20060907
  Transmission Date: 20061208
  Serious: Yes (Other)
  Sender: FDA-Public Use
  Company Number: NL200609002225

PATIENT
  Age: 74 Year
  Sex: Male
  Weight: 82 kg

DRUGS (1)
  1. CIALIS [Suspect]
     Dosage: 10 MG, AS NEEDED, UNK
     Dates: start: 20050101

REACTIONS (1)
  - BLINDNESS UNILATERAL [None]
